FAERS Safety Report 7589720-8 (Version None)
Quarter: 2011Q3

REPORT INFORMATION
  Report Type: 
  Country: None (occurrence: None)
  Receive Date: 20110705
  Receipt Date: 20110627
  Transmission Date: 20111222
  Serious: Yes (Other)
  Sender: FDA-Public Use
  Company Number: US-ELI_LILLY_AND_COMPANY-US201106008161

PATIENT
  Sex: Male

DRUGS (4)
  1. HUMULIN N [Suspect]
     Dosage: 10 U, OTHER
     Dates: start: 19820101
  2. QUINAPRIL HCL [Concomitant]
     Dosage: UNK
  3. HUMULIN N [Suspect]
     Indication: DIABETES MELLITUS
     Dosage: 60 U, EACH MORNING
     Dates: start: 19820101
  4. HUMULIN R [Concomitant]
     Dosage: UNK

REACTIONS (4)
  - HYPOGLYCAEMIC UNCONSCIOUSNESS [None]
  - BLOOD GLUCOSE DECREASED [None]
  - ROAD TRAFFIC ACCIDENT [None]
  - HYPOGLYCAEMIA UNAWARENESS [None]
